FAERS Safety Report 6993966-7 (Version None)
Quarter: 2010Q3

REPORT INFORMATION
  Report Type: 
  Country: None (occurrence: None)
  Receive Date: 20100917
  Receipt Date: 20080522
  Transmission Date: 20110219
  Serious: Yes (Hospitalization, Other)
  Sender: FDA-Public Use
  Company Number: US-ASTRAZENECA-2007UW20584

PATIENT
  Age: 35 Year
  Sex: Male

DRUGS (13)
  1. SEROQUEL [Suspect]
     Indication: BIPOLAR DISORDER
     Route: 048
     Dates: start: 19880101
  2. SEROQUEL [Suspect]
     Indication: DEPRESSION
     Route: 048
     Dates: start: 19880101
  3. SEROQUEL [Suspect]
     Dosage: 25-300 MG
     Route: 048
     Dates: start: 20021219
  4. SEROQUEL [Suspect]
     Dosage: 25-300 MG
     Route: 048
     Dates: start: 20021219
  5. ABILIFY [Concomitant]
  6. THORAZINE [Concomitant]
  7. PERCOCET [Concomitant]
     Indication: PAIN
     Dosage: 5/325, 1-2 EVERY SIX HOURS
     Dates: start: 19990415
  8. PRILOSEC [Concomitant]
     Dosage: 20-40 MG
     Route: 048
     Dates: start: 19990415
  9. PROPULSID [Concomitant]
  10. CYCLOBENZAPRINE [Concomitant]
     Dosage: 10 MG
     Dates: start: 20030128
  11. AMBIEN [Concomitant]
     Dosage: 10 MG
     Dates: start: 20020820
  12. NEURONTIN [Concomitant]
     Dosage: 100-300 MG
     Dates: start: 20000410
  13. VICODIN [Concomitant]
     Dosage: 7.5/750
     Dates: start: 20021119

REACTIONS (4)
  - DIABETES MELLITUS [None]
  - PANCREATITIS [None]
  - PANCREATITIS ACUTE [None]
  - PANCREATITIS RELAPSING [None]
